FAERS Safety Report 24745785 (Version 1)
Quarter: 2024Q4

REPORT INFORMATION
  Report Type: Spontaneous
  Country: US (occurrence: US)
  Receive Date: 20241218
  Receipt Date: 20241218
  Transmission Date: 20250114
  Serious: No
  Sender: SANOFI AVENTIS
  Company Number: US-SA-2024SA369889

PATIENT
  Sex: Female

DRUGS (24)
  1. DUPIXENT [Suspect]
     Active Substance: DUPILUMAB
     Indication: Asthma
     Dosage: 300 MG, QOW
     Route: 058
     Dates: start: 20220621
  2. ALBUTEROL [Concomitant]
     Active Substance: ALBUTEROL
     Dosage: UNK
  3. AMLODIPINE [Concomitant]
     Active Substance: AMLODIPINE BESYLATE
  4. CHANTIX [Concomitant]
     Active Substance: VARENICLINE TARTRATE
  5. CYCLOBENZAPRINE [Concomitant]
     Active Substance: CYCLOBENZAPRINE
  6. DOXEPIN [Concomitant]
     Active Substance: DOXEPIN
  7. DULOXETINE [Concomitant]
     Active Substance: DULOXETINE
  8. EPINEPHRINE [Concomitant]
     Active Substance: EPINEPHRINE
  9. ESTRADIOL [Concomitant]
     Active Substance: ESTRADIOL
  10. FLUOROURACIL [Concomitant]
     Active Substance: FLUOROURACIL
  11. LOSARTAN [Concomitant]
     Active Substance: LOSARTAN
  12. MELOXICAM [Concomitant]
     Active Substance: MELOXICAM
  13. METOPROLOL SUCCINATE [Concomitant]
     Active Substance: METOPROLOL SUCCINATE
  14. MONTELUKAST [Concomitant]
     Active Substance: MONTELUKAST SODIUM
  15. OMEPRAZOLE [Concomitant]
     Active Substance: OMEPRAZOLE
  16. PNEUMOVAX 23 [Concomitant]
     Active Substance: PNEUMOCOCCAL VACCINE, POLYVALENT 23
     Dosage: 25/0.5
  17. PRAVASTATIN [Concomitant]
     Active Substance: PRAVASTATIN
  18. PREDNISONE [Concomitant]
     Active Substance: PREDNISONE
  19. PROGESTERONE [Concomitant]
     Active Substance: PROGESTERONE
  20. SHINGRIX [Concomitant]
     Active Substance: RECOMBINANT VARICELLA ZOSTER VIRUS (VZV) GLYCOPROTEIN E
  21. STIOLTO RESPIMAT [Concomitant]
     Active Substance: OLODATEROL HYDROCHLORIDE\TIOTROPIUM BROMIDE MONOHYDRATE
     Dosage: AER 2.5-2.5
  22. TRAMADOL HCL [Concomitant]
     Active Substance: TRAMADOL HYDROCHLORIDE
  23. TRELEGY ELLIPTA [Concomitant]
     Active Substance: FLUTICASONE FUROATE\UMECLIDINIUM BROMIDE\VILANTEROL TRIFENATATE
  24. WELLBUTRIN [Concomitant]
     Active Substance: BUPROPION HYDROCHLORIDE
     Dosage: SR

REACTIONS (3)
  - Depression [Unknown]
  - Impaired quality of life [Unknown]
  - Drug ineffective [Unknown]
